FAERS Safety Report 17247407 (Version 1)
Quarter: 2020Q1

REPORT INFORMATION
  Report Type: Spontaneous
  Country: AU (occurrence: AU)
  Receive Date: 20200108
  Receipt Date: 20200108
  Transmission Date: 20200409
  Serious: Yes (Life-Threatening, Hospitalization, Other)
  Sender: FDA-Public Use
  Company Number: AU-MYLANLABS-2020M1001612

PATIENT
  Age: 44 Year
  Sex: Female

DRUGS (13)
  1. METHOTREXATE. [Suspect]
     Active Substance: METHOTREXATE
     Indication: HEPATOSPLENIC T-CELL LYMPHOMA
     Dosage: UNKNOWN INITIAL DOSE
     Route: 037
  2. CYCLOPHOSPHAMIDE. [Suspect]
     Active Substance: CYCLOPHOSPHAMIDE
     Indication: HEPATOSPLENIC T-CELL LYMPHOMA
     Route: 065
  3. VINCRISTINE [Suspect]
     Active Substance: VINCRISTINE
     Indication: HEPATOSPLENIC T-CELL LYMPHOMA
     Route: 065
  4. CYTARABINE. [Suspect]
     Active Substance: CYTARABINE
     Indication: HEPATOSPLENIC T-CELL LYMPHOMA
     Dosage: UNKNOWN INITIAL DOSE; FREQUENCY OF ADMINISTRATION: TWICE WEEKLY
     Route: 037
  5. METHOTREXATE. [Suspect]
     Active Substance: METHOTREXATE
     Indication: HEPATOSPLENIC T-CELL LYMPHOMA
     Dosage: HIGH DOSE
     Route: 065
  6. CYTARABINE. [Suspect]
     Active Substance: CYTARABINE
     Indication: HEPATOSPLENIC T-CELL LYMPHOMA
     Dosage: UNKNOWN INITIAL DOSE
     Route: 065
  7. CYTARABINE. [Suspect]
     Active Substance: CYTARABINE
     Dosage: 100 MILLIGRAM
     Route: 037
  8. METHOTREXATE. [Suspect]
     Active Substance: METHOTREXATE
     Dosage: HIGH DOSE
     Route: 042
  9. DEXAMETHASONE. [Suspect]
     Active Substance: DEXAMETHASONE
     Indication: HEPATOSPLENIC T-CELL LYMPHOMA
     Route: 065
  10. PRALATREXATE [Concomitant]
     Active Substance: PRALATREXATE
     Indication: HEPATOSPLENIC T-CELL LYMPHOMA
     Route: 065
  11. METHOTREXATE. [Suspect]
     Active Substance: METHOTREXATE
     Dosage: 12 MILLIGRAM
     Route: 037
  12. CYTARABINE. [Suspect]
     Active Substance: CYTARABINE
     Dosage: 3G/M2
     Route: 065
  13. DOXORUBICIN [Suspect]
     Active Substance: DOXORUBICIN
     Indication: HEPATOSPLENIC T-CELL LYMPHOMA
     Route: 065

REACTIONS (7)
  - Metastases to central nervous system [Unknown]
  - Myelopathy [Unknown]
  - Metastases to meninges [Unknown]
  - Quadriplegia [Unknown]
  - Neutropenic sepsis [Unknown]
  - Extradural haematoma [Recovering/Resolving]
  - Malignant neoplasm progression [Unknown]
